FAERS Safety Report 7234834-5 (Version None)
Quarter: 2011Q1

REPORT INFORMATION
  Report Type: 
  Country: None (occurrence: None)
  Receive Date: 20110120
  Receipt Date: 20110110
  Transmission Date: 20110831
  Serious: Yes (Hospitalization)
  Sender: FDA-Public Use
  Company Number: CA-JNJFOC-20110103175

PATIENT
  Sex: Male
  Weight: 69.4 kg

DRUGS (7)
  1. PROSCAR [Concomitant]
  2. WELLBUTRIN SR [Concomitant]
  3. IMOVANE [Concomitant]
  4. CIPRALEX [Concomitant]
  5. REMICADE [Suspect]
     Indication: CROHN'S DISEASE
     Route: 042
  6. DILAUDID [Concomitant]
     Route: 048
  7. ATIVAN [Concomitant]

REACTIONS (2)
  - ROAD TRAFFIC ACCIDENT [None]
  - LIMB INJURY [None]
